FAERS Safety Report 17287703 (Version 2)
Quarter: 2020Q1

REPORT INFORMATION
  Report Type: Spontaneous
  Country: US (occurrence: US)
  Receive Date: 20200120
  Receipt Date: 20200306
  Transmission Date: 20200409
  Serious: No
  Sender: FDA-Public Use
  Company Number: US-ALEXION PHARMACEUTICALS INC.-A201920044

PATIENT
  Age: 19 Year
  Sex: Female

DRUGS (1)
  1. STRENSIQ [Suspect]
     Active Substance: ASFOTASE ALFA
     Indication: HYPOPHOSPHATASIA
     Dosage: 80 MG, TIW, MWF
     Route: 065
     Dates: start: 201810

REACTIONS (7)
  - Emotional disorder [Recovered/Resolved]
  - Injection site pruritus [Recovered/Resolved]
  - Mood swings [Recovered/Resolved]
  - Injection site warmth [Recovered/Resolved]
  - Feeling abnormal [Recovered/Resolved]
  - Injection site urticaria [Recovered/Resolved]
  - Injection site pain [Recovered/Resolved]

NARRATIVE: CASE EVENT DATE: 201810
